FAERS Safety Report 4997137-5 (Version None)
Quarter: 2006Q2

REPORT INFORMATION
  Report Type: 
  Country: None (occurrence: None)
  Receive Date: 20060509
  Receipt Date: 20060314
  Transmission Date: 20061013
  Serious: Yes (Death)
  Sender: FDA-Public Use
  Company Number: FR-NOVOPROD-251588

PATIENT
  Age: 56 Year
  Sex: Male

DRUGS (5)
  1. NOVOSEVEN [Suspect]
     Indication: SHOCK HAEMORRHAGIC
     Dosage: 4.8 MG, SINGLE
     Route: 042
     Dates: start: 20051119
  2. NOVOSEVEN [Suspect]
     Dosage: 2.8 MG, SINGLE
     Route: 042
     Dates: start: 20051119
  3. TRIATEC [Concomitant]
  4. ALDACTAZINE [Concomitant]
  5. LEXOMIL [Concomitant]

REACTIONS (4)
  - CARDIOGENIC SHOCK [None]
  - EJECTION FRACTION DECREASED [None]
  - MYOCARDIAL INFARCTION [None]
  - PHARMACEUTICAL PRODUCT COMPLAINT [None]
